FAERS Safety Report 8543619-9 (Version None)
Quarter: 2012Q3

REPORT INFORMATION
  Report Type: 
  Country: None (occurrence: None)
  Receive Date: 20120727
  Receipt Date: 20120724
  Transmission Date: 20120928
  Serious: Yes (Hospitalization, Other)
  Sender: FDA-Public Use
  Company Number: US-AMGEN-USASP2011017889

PATIENT
  Age: 59 Year
  Sex: Female
  Weight: 90.249 kg

DRUGS (2)
  1. ENBREL [Suspect]
     Indication: RHEUMATOID ARTHRITIS
     Dosage: 50 MG, QWK
     Route: 058
     Dates: start: 20100629
  2. ENBREL [Suspect]
     Dosage: 50 MG, QWK
     Dates: start: 20100224, end: 20100930

REACTIONS (3)
  - SCIATICA [None]
  - INTERVERTEBRAL DISC DEGENERATION [None]
  - FALL [None]
